FAERS Safety Report 4903063-X (Version None)
Quarter: 2006Q1

REPORT INFORMATION
  Report Type: 
  Country: None (occurrence: None)
  Receive Date: 20060207
  Receipt Date: 20060127
  Transmission Date: 20060701
  Serious: Yes (Hospitalization)
  Sender: FDA-Public Use
  Company Number: CA-ROCHE-434222

PATIENT
  Age: 81 Year
  Sex: Female
  Weight: 56 kg

DRUGS (12)
  1. DEMADEX [Suspect]
     Indication: CARDIAC FAILURE
     Dosage: OTHER INDICATION: HYPERTENSION
     Route: 048
     Dates: start: 19970612
  2. COZAAR [Concomitant]
     Route: 048
     Dates: start: 20010701
  3. IMDUR [Concomitant]
     Route: 048
  4. LOPRESSOR SR [Concomitant]
     Route: 048
  5. ACETYLSALICYLIC ACID SRT [Concomitant]
     Route: 048
  6. SYNTHROID [Concomitant]
     Indication: HYPOTHYROIDISM
     Route: 048
  7. ALLOPURINOL [Concomitant]
     Indication: GOUT
     Route: 048
  8. PRAVACHOL [Concomitant]
     Route: 048
  9. PANTOPRAZOLE SODIUM [Concomitant]
     Route: 048
  10. MIACALCIN [Concomitant]
     Dosage: ROUTE: NASAL SPRAY
     Route: 050
  11. VITAMINE D [Concomitant]
     Route: 048
  12. VITAMIN B6 [Concomitant]

REACTIONS (3)
  - BLOOD URIC ACID INCREASED [None]
  - CARDIAC FAILURE [None]
  - DIVERTICULITIS [None]
